FAERS Safety Report 10225033 (Version 1)
Quarter: 2014Q2

REPORT INFORMATION
  Report Type: Report from Study
  Country: BR (occurrence: BR)
  Receive Date: 20140609
  Receipt Date: 20140609
  Transmission Date: 20141212
  Serious: Yes (Hospitalization, Other)
  Sender: FDA-Public Use
  Company Number: PHHY2014BR066814

PATIENT
  Sex: Female
  Weight: 75 kg

DRUGS (3)
  1. DIOVAN HCT [Suspect]
     Indication: HYPERTENSION
     Dosage: UNK UKN, ONCE
     Route: 048
  2. DIOVAN [Suspect]
     Indication: HYPERTENSION
     Dosage: 1 DF, UNK
     Route: 048
  3. DIOVAN [Suspect]
     Dosage: 0.5 DF, UNK

REACTIONS (4)
  - Gastric ulcer [Recovered/Resolved]
  - Weight increased [Recovered/Resolved]
  - Drug intolerance [Recovered/Resolved]
  - Weight decreased [Recovered/Resolved]
